FAERS Safety Report 25160325 (Version 2)
Quarter: 2025Q2

REPORT INFORMATION
  Report Type: Spontaneous
  Country: CN (occurrence: CN)
  Receive Date: 20250404
  Receipt Date: 20250417
  Transmission Date: 20250716
  Serious: Yes (Hospitalization)
  Sender: PFIZER
  Company Number: CN-TAKEDA-2025TUS030717

PATIENT
  Age: 48 Year
  Sex: Female
  Weight: 70 kg

DRUGS (8)
  1. BRENTUXIMAB VEDOTIN [Suspect]
     Active Substance: BRENTUXIMAB VEDOTIN
     Indication: Peripheral T-cell lymphoma unspecified
     Dosage: 120 MILLIGRAM, QD
     Route: 041
     Dates: start: 20250309
  2. BRENTUXIMAB VEDOTIN [Suspect]
     Active Substance: BRENTUXIMAB VEDOTIN
     Indication: Angioimmunoblastic T-cell lymphoma
  3. MITOXANTRONE HYDROCHLORIDE [Suspect]
     Active Substance: MITOXANTRONE HYDROCHLORIDE
     Indication: Peripheral T-cell lymphoma unspecified
     Dosage: 30 MILLIGRAM, QD
     Route: 041
     Dates: start: 20250310
  4. MITOXANTRONE HYDROCHLORIDE [Suspect]
     Active Substance: MITOXANTRONE HYDROCHLORIDE
     Indication: Angioimmunoblastic T-cell lymphoma
  5. SODIUM CHLORIDE [Suspect]
     Active Substance: SODIUM CHLORIDE
     Indication: Peripheral T-cell lymphoma unspecified
     Dosage: 100 MILLILITER, QD
     Route: 041
     Dates: start: 20250309
  6. SODIUM CHLORIDE [Suspect]
     Active Substance: SODIUM CHLORIDE
     Indication: Angioimmunoblastic T-cell lymphoma
  7. DEXTROSE [Suspect]
     Active Substance: DEXTROSE MONOHYDRATE
     Indication: Peripheral T-cell lymphoma unspecified
     Dosage: 250 MILLILITER, QD
     Route: 041
     Dates: start: 20250310
  8. DEXTROSE [Suspect]
     Active Substance: DEXTROSE MONOHYDRATE
     Indication: Angioimmunoblastic T-cell lymphoma

REACTIONS (1)
  - White blood cell count decreased [Unknown]

NARRATIVE: CASE EVENT DATE: 20250318
